FAERS Safety Report 18542395 (Version 5)
Quarter: 2024Q1

REPORT INFORMATION
  Report Type: Spontaneous
  Country: US (occurrence: US)
  Receive Date: 20201125
  Receipt Date: 20240221
  Transmission Date: 20240410
  Serious: Yes (Other)
  Sender: FDA-Public Use
  Company Number: US-GLAXOSMITHKLINE-US2020AMR229374

PATIENT
  Age: 32 Year
  Sex: Female

DRUGS (1)
  1. BENLYSTA [Suspect]
     Active Substance: BELIMUMAB
     Indication: Systemic lupus erythematosus
     Dosage: UNK
     Route: 058
     Dates: start: 20110401

REACTIONS (10)
  - Lupus encephalitis [Not Recovered/Not Resolved]
  - Cerebrospinal fluid leakage [Unknown]
  - Endodontic procedure [Unknown]
  - Central nervous system lesion [Unknown]
  - Lumbar puncture [Unknown]
  - Nausea [Unknown]
  - Headache [Unknown]
  - Premature baby [Unknown]
  - Exposure during pregnancy [Unknown]
  - Live birth [Unknown]

NARRATIVE: CASE EVENT DATE: 20201115
